FAERS Safety Report 18891017 (Version 3)
Quarter: 2021Q1

REPORT INFORMATION
  Report Type: Spontaneous
  Country: FR (occurrence: FR)
  Receive Date: 20210215
  Receipt Date: 20210310
  Transmission Date: 20210420
  Serious: Yes (Other)
  Sender: FDA-Public Use
  Company Number: FR-AUROBINDO-AUR-APL-2021-005312

PATIENT
  Age: 87 Year
  Sex: Female

DRUGS (63)
  1. 5?FLUOROURACIL [Suspect]
     Active Substance: FLUOROURACIL
     Dosage: 350MG AND 2000MG AT EACH CHEMOTHERAPY CURE
     Route: 042
     Dates: start: 20201201
  2. METHYLPREDNISOLONE. [Suspect]
     Active Substance: METHYLPREDNISOLONE
     Dosage: 40 MILLIGRAM AT EACH CHEMOTHERAPY CURE
     Route: 042
     Dates: start: 20201215
  3. ELIQUIS [Concomitant]
     Active Substance: APIXABAN
     Indication: CARDIAC DISORDER
     Dosage: 1 DOSAGE FORM, TWO TIMES A DAY
     Route: 048
  4. PANTOPRAZOLE SODIUM. [Concomitant]
     Active Substance: PANTOPRAZOLE SODIUM
     Indication: GASTROINTESTINAL DISORDER
     Dosage: 1 DOSAGE FORM, ONCE A DAY IN THE EVENING
     Route: 048
  5. 5?FLUOROURACIL [Suspect]
     Active Substance: FLUOROURACIL
     Dosage: 350MG AND 2000MG AT EACH CHEMOTHERAPY CURE
     Route: 042
     Dates: start: 20200917
  6. ONDANSETRON [Suspect]
     Active Substance: ONDANSETRON
     Dosage: 8 MILLIGRAM AT EACH CHEMOTHERAPY CURE
     Route: 042
     Dates: start: 20200917
  7. ONDANSETRON [Suspect]
     Active Substance: ONDANSETRON
     Dosage: 8 MILLIGRAM AT EACH CHEMOTHERAPY CURE
     Route: 042
     Dates: start: 20201008
  8. ONDANSETRON [Suspect]
     Active Substance: ONDANSETRON
     Dosage: 8 MILLIGRAM AT EACH CHEMOTHERAPY CURE
     Route: 042
     Dates: start: 20210112
  9. LEVOFOLINATE SODIUM [Suspect]
     Active Substance: LEVOLEUCOVORIN DISODIUM
     Dosage: 170 MILLIGRAM AT EACH CHEMOTHERAPY CURE
     Route: 042
     Dates: start: 20210112
  10. SODIUM CHLORIDE. [Suspect]
     Active Substance: SODIUM CHLORIDE
     Dosage: 100 MILLILITER AT EACH CHEMOTHERAPY CURE
     Route: 042
     Dates: start: 20200923
  11. PERINDOPRIL SANDOZ [Concomitant]
     Active Substance: PERINDOPRIL
     Indication: CARDIAC DISORDER
     Dosage: 1 DOSAGE FORM, ONCE A DAY
     Route: 048
  12. EUROBIOL [Concomitant]
     Indication: PRODUCT USED FOR UNKNOWN INDICATION
     Dosage: 6 DOSAGE FORM, DAILY (2 IN THE MORNING, 2 IN THE NOON, 2 IN THE EVENING)
     Route: 065
  13. AMIODARONE ARROW 200MG SCORED TABLETS [Suspect]
     Active Substance: AMIODARONE
     Indication: ARRHYTHMIA
     Dosage: 200 MILLIGRAM
     Route: 048
     Dates: start: 202011
  14. 5?FLUOROURACIL [Suspect]
     Active Substance: FLUOROURACIL
     Dosage: 350MG AND 2000MG AT EACH CHEMOTHERAPY CURE
     Route: 042
     Dates: start: 20200923
  15. 5?FLUOROURACIL [Suspect]
     Active Substance: FLUOROURACIL
     Dosage: 350MG AND 2000MG AT EACH CHEMOTHERAPY CURE
     Route: 042
     Dates: start: 20201015
  16. 5?FLUOROURACIL [Suspect]
     Active Substance: FLUOROURACIL
     Dosage: 350MG AND 2000MG AT EACH CHEMOTHERAPY CURE
     Route: 042
     Dates: start: 20210126
  17. ONDANSETRON [Suspect]
     Active Substance: ONDANSETRON
     Dosage: 8 MILLIGRAM AT EACH CHEMOTHERAPY CURE
     Route: 042
     Dates: start: 20201117
  18. ONDANSETRON [Suspect]
     Active Substance: ONDANSETRON
     Dosage: 8 MILLIGRAM AT EACH CHEMOTHERAPY CURE
     Route: 042
     Dates: start: 20210126
  19. LEVOFOLINATE SODIUM [Suspect]
     Active Substance: LEVOLEUCOVORIN DISODIUM
     Dosage: 170 MILLIGRAM AT EACH CHEMOTHERAPY CURE
     Route: 042
     Dates: start: 20200917
  20. LEVOFOLINATE SODIUM [Suspect]
     Active Substance: LEVOLEUCOVORIN DISODIUM
     Dosage: 170 MILLIGRAM AT EACH CHEMOTHERAPY CURE
     Route: 042
     Dates: start: 20201201
  21. SODIUM CHLORIDE. [Suspect]
     Active Substance: SODIUM CHLORIDE
     Dosage: 100 MILLILITER AT EACH CHEMOTHERAPY CURE
     Route: 042
     Dates: start: 20210112
  22. 5?FLUOROURACIL [Suspect]
     Active Substance: FLUOROURACIL
     Indication: PANCREATIC CARCINOMA
     Dosage: 350MG AND 2000MG AT EACH CHEMOTHERAPY CURE
     Route: 042
     Dates: start: 20200909
  23. 5?FLUOROURACIL [Suspect]
     Active Substance: FLUOROURACIL
     Dosage: 350MG AND 2000MG AT EACH CHEMOTHERAPY CURE
     Route: 042
     Dates: start: 20201008
  24. 5?FLUOROURACIL [Suspect]
     Active Substance: FLUOROURACIL
     Dosage: 350MG AND 2000MG AT EACH CHEMOTHERAPY CURE
     Route: 042
     Dates: start: 20201215
  25. ONDANSETRON [Suspect]
     Active Substance: ONDANSETRON
     Dosage: 8 MILLIGRAM AT EACH CHEMOTHERAPY CURE
     Route: 042
     Dates: start: 20200923
  26. ONDANSETRON [Suspect]
     Active Substance: ONDANSETRON
     Dosage: 8 MILLIGRAM AT EACH CHEMOTHERAPY CURE
     Route: 042
     Dates: start: 20201015
  27. METHYLPREDNISOLONE. [Suspect]
     Active Substance: METHYLPREDNISOLONE
     Dosage: 40 MILLIGRAM AT EACH CHEMOTHERAPY CURE
     Route: 042
     Dates: start: 20201201
  28. SODIUM CHLORIDE. [Suspect]
     Active Substance: SODIUM CHLORIDE
     Dosage: 100 MILLILITER AT EACH CHEMOTHERAPY CURE
     Route: 042
     Dates: start: 20200917
  29. SODIUM CHLORIDE. [Suspect]
     Active Substance: SODIUM CHLORIDE
     Dosage: 100 MILLILITER AT EACH CHEMOTHERAPY CURE
     Route: 042
     Dates: start: 20201008
  30. SODIUM CHLORIDE. [Suspect]
     Active Substance: SODIUM CHLORIDE
     Dosage: 100 MILLILITER AT EACH CHEMOTHERAPY CURE
     Route: 042
     Dates: start: 20201117
  31. SODIUM CHLORIDE. [Suspect]
     Active Substance: SODIUM CHLORIDE
     Dosage: 100 MILLILITER AT EACH CHEMOTHERAPY CURE
     Route: 042
     Dates: start: 20201229
  32. METHYLPREDNISOLONE. [Suspect]
     Active Substance: METHYLPREDNISOLONE
     Dosage: 40 MILLIGRAM AT EACH CHEMOTHERAPY CURE
     Route: 042
     Dates: start: 20200917
  33. METHYLPREDNISOLONE. [Suspect]
     Active Substance: METHYLPREDNISOLONE
     Dosage: 40 MILLIGRAM AT EACH CHEMOTHERAPY CURE
     Route: 042
     Dates: start: 20200923
  34. METHYLPREDNISOLONE. [Suspect]
     Active Substance: METHYLPREDNISOLONE
     Dosage: 40 MILLIGRAM AT EACH CHEMOTHERAPY CURE
     Route: 042
     Dates: start: 20201015
  35. METHYLPREDNISOLONE. [Suspect]
     Active Substance: METHYLPREDNISOLONE
     Dosage: 40 MILLIGRAM AT EACH CHEMOTHERAPY CURE
     Route: 042
     Dates: start: 20201229
  36. LEVOFOLINATE SODIUM [Suspect]
     Active Substance: LEVOLEUCOVORIN DISODIUM
     Dosage: 170 MILLIGRAM AT EACH CHEMOTHERAPY CURE
     Route: 042
     Dates: start: 20201008
  37. LEVOFOLINATE SODIUM [Suspect]
     Active Substance: LEVOLEUCOVORIN DISODIUM
     Dosage: 170 MILLIGRAM AT EACH CHEMOTHERAPY CURE
     Route: 042
     Dates: start: 20201015
  38. LEVOFOLINATE SODIUM [Suspect]
     Active Substance: LEVOLEUCOVORIN DISODIUM
     Dosage: 170 MILLIGRAM AT EACH CHEMOTHERAPY CURE
     Route: 042
     Dates: start: 20201117
  39. LEVOFOLINATE SODIUM [Suspect]
     Active Substance: LEVOLEUCOVORIN DISODIUM
     Dosage: 170 MILLIGRAM AT EACH CHEMOTHERAPY CURE
     Route: 042
     Dates: start: 20210126
  40. SODIUM CHLORIDE. [Suspect]
     Active Substance: SODIUM CHLORIDE
     Dosage: 100 MILLILITER AT EACH CHEMOTHERAPY CURE
     Route: 042
     Dates: start: 20201201
  41. SODIUM CHLORIDE. [Suspect]
     Active Substance: SODIUM CHLORIDE
     Dosage: 100 MILLILITER AT EACH CHEMOTHERAPY CURE
     Route: 042
     Dates: start: 20201215
  42. ALLOPURINOL TEVA [Concomitant]
     Active Substance: ALLOPURINOL
     Indication: CARDIAC DISORDER
     Dosage: 1 DOSAGE FORM, ONCE A DAY
     Route: 048
  43. 5?FLUOROURACIL [Suspect]
     Active Substance: FLUOROURACIL
     Dosage: 350MG AND 2000MG AT EACH CHEMOTHERAPY CURE
     Route: 042
     Dates: start: 20210112
  44. ONDANSETRON [Suspect]
     Active Substance: ONDANSETRON
     Dosage: 8 MILLIGRAM AT EACH CHEMOTHERAPY CURE
     Route: 042
     Dates: start: 20201215
  45. ONDANSETRON [Suspect]
     Active Substance: ONDANSETRON
     Dosage: 8 MILLIGRAM AT EACH CHEMOTHERAPY CURE
     Route: 042
     Dates: start: 20201229
  46. METHYLPREDNISOLONE. [Suspect]
     Active Substance: METHYLPREDNISOLONE
     Dosage: 40 MILLIGRAM AT EACH CHEMOTHERAPY CURE
     Route: 042
     Dates: start: 20210112
  47. LEVOFOLINATE SODIUM [Suspect]
     Active Substance: LEVOLEUCOVORIN DISODIUM
     Dosage: 170 MILLIGRAM AT EACH CHEMOTHERAPY CURE
     Route: 042
     Dates: start: 20200923
  48. LEVOFOLINATE SODIUM [Suspect]
     Active Substance: LEVOLEUCOVORIN DISODIUM
     Dosage: 170 MILLIGRAM AT EACH CHEMOTHERAPY CURE
     Route: 042
     Dates: start: 20201229
  49. FUROSEMIDE SANDOZ [Concomitant]
     Active Substance: FUROSEMIDE
     Indication: CARDIAC DISORDER
     Dosage: 1 DOSAGE FORM, ONCE A DAY
     Route: 048
  50. 5?FLUOROURACIL [Suspect]
     Active Substance: FLUOROURACIL
     Dosage: 350MG AND 2000MG AT EACH CHEMOTHERAPY CURE
     Route: 042
     Dates: start: 20201117
  51. 5?FLUOROURACIL [Suspect]
     Active Substance: FLUOROURACIL
     Dosage: 350MG AND 2000MG AT EACH CHEMOTHERAPY CURE
     Route: 042
     Dates: start: 20201229
  52. ONDANSETRON [Suspect]
     Active Substance: ONDANSETRON
     Indication: CHEMOTHERAPY
     Dosage: 8 MILLIGRAM AT EACH CHEMOTHERAPY CURE
     Route: 042
     Dates: start: 20200909
  53. ONDANSETRON [Suspect]
     Active Substance: ONDANSETRON
     Dosage: 8 MILLIGRAM AT EACH CHEMOTHERAPY CURE
     Route: 042
     Dates: start: 20201201
  54. METHYLPREDNISOLONE. [Suspect]
     Active Substance: METHYLPREDNISOLONE
     Dosage: 40 MILLIGRAM AT EACH CHEMOTHERAPY CURE
     Route: 042
     Dates: start: 20201008
  55. LEVOFOLINATE SODIUM [Suspect]
     Active Substance: LEVOLEUCOVORIN DISODIUM
     Indication: CHEMOTHERAPY
     Dosage: 170 MILLIGRAM AT EACH CHEMOTHERAPY CURE
     Route: 042
     Dates: start: 20200909
  56. LEVOFOLINATE SODIUM [Suspect]
     Active Substance: LEVOLEUCOVORIN DISODIUM
     Dosage: 170 MILLIGRAM AT EACH CHEMOTHERAPY CURE
     Route: 042
     Dates: start: 20200923
  57. SODIUM CHLORIDE. [Suspect]
     Active Substance: SODIUM CHLORIDE
     Indication: CHEMOTHERAPY
     Dosage: 100 MILLILITER AT EACH CHEMOTHERAPY CURE
     Route: 042
     Dates: start: 20200909
  58. METHYLPREDNISOLONE. [Suspect]
     Active Substance: METHYLPREDNISOLONE
     Indication: CHEMOTHERAPY
     Dosage: 40 MILLIGRAM AT EACH CHEMOTHERAPY CURE
     Route: 042
     Dates: start: 20200909
  59. METHYLPREDNISOLONE. [Suspect]
     Active Substance: METHYLPREDNISOLONE
     Dosage: 40 MILLIGRAM AT EACH CHEMOTHERAPY CURE
     Route: 042
     Dates: start: 20201117
  60. METHYLPREDNISOLONE. [Suspect]
     Active Substance: METHYLPREDNISOLONE
     Dosage: 40 MILLIGRAM AT EACH CHEMOTHERAPY CURE
     Route: 042
     Dates: start: 20210126
  61. LEVOFOLINATE SODIUM [Suspect]
     Active Substance: LEVOLEUCOVORIN DISODIUM
     Dosage: 170 MILLIGRAM AT EACH CHEMOTHERAPY CURE
     Route: 042
     Dates: start: 20201215
  62. SODIUM CHLORIDE. [Suspect]
     Active Substance: SODIUM CHLORIDE
     Dosage: 100 MILLILITER AT EACH CHEMOTHERAPY CURE
     Route: 042
     Dates: start: 20201015
  63. SODIUM CHLORIDE. [Suspect]
     Active Substance: SODIUM CHLORIDE
     Dosage: 100 MILLILITER AT EACH CHEMOTHERAPY CURE
     Route: 042
     Dates: start: 20210126

REACTIONS (11)
  - Anxiety [Recovered/Resolved]
  - Vision blurred [Recovered/Resolved]
  - Dyspnoea [Recovered/Resolved]
  - Fatigue [Not Recovered/Not Resolved]
  - Crying [Recovered/Resolved]
  - Tremor [Recovered/Resolved]
  - Aphasia [Recovered/Resolved]
  - Seizure [Recovered/Resolved]
  - Gait inability [Recovered/Resolved]
  - Feeling abnormal [Recovered/Resolved]
  - Labelled drug-drug interaction issue [Unknown]

NARRATIVE: CASE EVENT DATE: 20201117
